FAERS Safety Report 6424112-6 (Version None)
Quarter: 2009Q4

REPORT INFORMATION
  Report Type: 
  Country: None (occurrence: None)
  Receive Date: 20091029
  Receipt Date: 20091015
  Transmission Date: 20100525
  Serious: Yes (Other)
  Sender: FDA-Public Use
  Company Number: 002025

PATIENT
  Sex: Male

DRUGS (2)
  1. NEUPRO [Suspect]
     Indication: PARKINSON'S DISEASE
     Dosage: 4 MG 1X24 HOURS TRANSDERMAL
     Route: 062
  2. MADOPAR [Concomitant]

REACTIONS (3)
  - APPLICATION SITE PRURITUS [None]
  - MACULAR DEGENERATION [None]
  - SKIN IRRITATION [None]
